FAERS Safety Report 4884421-9 (Version None)
Quarter: 2006Q1

REPORT INFORMATION
  Report Type: 
  Country: None (occurrence: None)
  Receive Date: 20060117
  Receipt Date: 20060117
  Transmission Date: 20060701
  Serious: Yes (Other)
  Sender: FDA-Public Use
  Company Number: None

PATIENT
  Sex: Female
  Weight: 76.6579 kg

DRUGS (3)
  1. REMICADE [Suspect]
     Indication: RHEUMATOID ARTHRITIS
     Dosage: 400 MG Q 5 WEEKS IV
     Route: 042
     Dates: start: 20031201, end: 20051001
  2. ARAVA [Concomitant]
  3. PREDNISONE [Concomitant]

REACTIONS (1)
  - LUNG NEOPLASM MALIGNANT [None]
